FAERS Safety Report 16730344 (Version 1)
Quarter: 2019Q3

REPORT INFORMATION
  Report Type: Spontaneous
  Country: US (occurrence: US)
  Receive Date: 20190822
  Receipt Date: 20190822
  Transmission Date: 20191005
  Serious: No
  Sender: FDA-Public Use
  Company Number: US-AMGEN-USASP2019131953

PATIENT
  Sex: Male

DRUGS (1)
  1. REPATHA [Suspect]
     Active Substance: EVOLOCUMAB
     Indication: PROPHYLAXIS
     Dosage: 140 MILLIGRAM, Q2WK
     Route: 065
     Dates: start: 201811

REACTIONS (1)
  - Back pain [Unknown]
